FAERS Safety Report 8169918-0 (Version None)
Quarter: 2012Q1

REPORT INFORMATION
  Report Type: 
  Country: None (occurrence: None)
  Receive Date: 20120105
  Receipt Date: 20110301
  Transmission Date: 20120608
  Serious: Yes (Other)
  Sender: FDA-Public Use
  Company Number: US-005873

PATIENT
  Age: 69 Year
  Sex: Male
  Weight: 86 kg

DRUGS (8)
  1. PROHANCE [Suspect]
     Indication: VARIANT CREUTZFELDT-JAKOB DISEASE
     Dosage: 20ML ONCE INTRAVENOUS (NOT OTHERWISE SPECIFIED)
     Route: 042
     Dates: start: 20110127, end: 20110127
  2. PROHANCE [Suspect]
     Indication: NUCLEAR MAGNETIC RESONANCE IMAGING
     Dosage: 20ML ONCE INTRAVENOUS (NOT OTHERWISE SPECIFIED)
     Route: 042
     Dates: start: 20110127, end: 20110127
  3. HYDRALAZINE HCL [Concomitant]
  4. METOPROLOL TARTRATE [Concomitant]
  5. ATIVAN [Concomitant]
  6. HYDROCHLOROTHIAZIDE [Concomitant]
  7. DIPRIVAN [Suspect]
     Indication: ANAESTHESIA
     Dosage: INTRAVENOUS (NOT OTHERWISE SPECIFIED)
     Route: 042
     Dates: start: 20110127, end: 20110127
  8. SEROQUEL [Concomitant]

REACTIONS (1)
  - BLOOD PRESSURE DECREASED [None]
